FAERS Safety Report 16978829 (Version 1)
Quarter: 2019Q4

REPORT INFORMATION
  Report Type: Spontaneous
  Country: US (occurrence: US)
  Receive Date: 20191029
  Receipt Date: 20191029
  Transmission Date: 20200122
  Serious: Yes (Hospitalization)
  Sender: FDA-Public Use
  Company Number: None

PATIENT
  Age: 73 Year
  Sex: Male

DRUGS (16)
  1. ACYCLOVIR. [Concomitant]
     Active Substance: ACYCLOVIR
  2. FERROUS SULF [Concomitant]
     Active Substance: FERROUS SULFATE
  3. VITAMIN C [Concomitant]
     Active Substance: ASCORBIC ACID
  4. TACROLIMUS. [Suspect]
     Active Substance: TACROLIMUS
     Indication: LUNG TRANSPLANT
     Dosage: ?          OTHER FREQUENCY:Q12H;?
     Route: 048
     Dates: start: 20150606
  5. ASPIRIN. [Concomitant]
     Active Substance: ASPIRIN
  6. CLOTRIMAZOLE. [Concomitant]
     Active Substance: CLOTRIMAZOLE
  7. AZITHROMYCIN ANHYDROUS. [Concomitant]
     Active Substance: AZITHROMYCIN ANHYDROUS
  8. CALCIUM [Concomitant]
     Active Substance: CALCIUM
  9. ONDANSETRON [Concomitant]
     Active Substance: ONDANSETRON
  10. PANTOPRAZOLE [Concomitant]
     Active Substance: PANTOPRAZOLE
  11. MULTI [Concomitant]
  12. AMIODARONE [Concomitant]
     Active Substance: AMIODARONE
  13. ATORVASTATIN [Concomitant]
     Active Substance: ATORVASTATIN
  14. MAG OXIDE [Concomitant]
     Active Substance: MAGNESIUM OXIDE
  15. FUROSEMIDE. [Concomitant]
     Active Substance: FUROSEMIDE
  16. METORPROLOL [Concomitant]

REACTIONS (1)
  - Accident [None]

NARRATIVE: CASE EVENT DATE: 20191013
